FAERS Safety Report 8980475 (Version 7)
Quarter: 2013Q1

REPORT INFORMATION
  Report Type: Spontaneous
  Country: JP (occurrence: JP)
  Receive Date: 20121221
  Receipt Date: 20130329
  Transmission Date: 20140127
  Serious: Yes (Other)
  Sender: FDA-Public Use
  Company Number: JP-PFIZER INC-2012324966

PATIENT
  Age: 83 Year
  Sex: Female

DRUGS (3)
  1. LYRICA [Suspect]
     Indication: LUMBAR SPINAL STENOSIS
     Dosage: 50 MG, 2X/DAY
     Route: 048
     Dates: start: 20121015, end: 20121211
  2. CELECOX [Suspect]
     Indication: INJURY
     Dosage: 200 MG, 2X/DAY
     Route: 048
     Dates: start: 20121019, end: 20121211
  3. GASLON [Suspect]
     Indication: PROPHYLAXIS AGAINST GASTROINTESTINAL ULCER
     Dosage: 2 MG, 2X/DAY
     Route: 048
     Dates: start: 20121019, end: 20121211

REACTIONS (1)
  - Vision blurred [Recovered/Resolved]
